FAERS Safety Report 7884500-8 (Version None)
Quarter: 2011Q4

REPORT INFORMATION
  Report Type: 
  Country: None (occurrence: None)
  Receive Date: 20111102
  Receipt Date: 20111021
  Transmission Date: 20120403
  Serious: Yes (Hospitalization, Other)
  Sender: FDA-Public Use
  Company Number: JP-UCBSA-042972

PATIENT
  Age: 21 Year
  Sex: Male
  Weight: 54 kg

DRUGS (2)
  1. KEPPRA [Suspect]
     Indication: EPILEPSY
     Route: 048
     Dates: start: 20110728, end: 20110817
  2. NONE [Concomitant]

REACTIONS (3)
  - RENAL FAILURE ACUTE [None]
  - CONVULSION [None]
  - PYREXIA [None]
